FAERS Safety Report 19679414 (Version 1)
Quarter: 2021Q3

REPORT INFORMATION
  Report Type: Spontaneous
  Country: DE (occurrence: DE)
  Receive Date: 20210810
  Receipt Date: 20210810
  Transmission Date: 20211014
  Serious: Yes (Hospitalization)
  Sender: FDA-Public Use
  Company Number: DE-MYLANLABS-2021M1048828

PATIENT
  Age: 18 Year
  Sex: Male

DRUGS (9)
  1. ONCOVIN [Suspect]
     Active Substance: VINCRISTINE SULFATE
     Indication: PRODUCT USED FOR UNKNOWN INDICATION
     Dosage: UNK (NK MG, ZULETZT AM 09.05.2017)
     Dates: end: 20170509
  2. ADRIAMYCIN [Suspect]
     Active Substance: DOXORUBICIN HYDROCHLORIDE
     Indication: PRODUCT USED FOR UNKNOWN INDICATION
     Dosage: UNK (NK MG, ZULETZT AM 09.05.2017)
     Dates: end: 20170509
  3. PROCARBAZINE [Suspect]
     Active Substance: PROCARBAZINE
     Indication: PRODUCT USED FOR UNKNOWN INDICATION
     Dosage: UNK (NK MG, ZULETZT AM 09.05.2017)
     Dates: end: 20170509
  4. LASTET [Suspect]
     Active Substance: ETOPOSIDE
     Indication: PRODUCT USED FOR UNKNOWN INDICATION
     Dosage: UNK (NK MG, ZULETZT AM 09.05.2017)
     Dates: end: 20170509
  5. BLEOMYCIN HYDROCHLORIDE [Suspect]
     Active Substance: BLEOMYCIN HYDROCHLORIDE
     Indication: PRODUCT USED FOR UNKNOWN INDICATION
     Dosage: UNK (NK MG, ZULETZT AM 09.05.2017)
     Dates: end: 20170509
  6. COLECALCIFEROL [Concomitant]
     Active Substance: CHOLECALCIFEROL
     Dosage: UNK (1000 IE, 1?0?0?0)
  7. CYCLOPHOSPHAMIDE. [Suspect]
     Active Substance: CYCLOPHOSPHAMIDE
     Indication: PRODUCT USED FOR UNKNOWN INDICATION
     Dosage: UNK (NK MG, ZULETZT AM 09.05.2017)
     Dates: end: 20170509
  8. PREDNISOLONE. [Suspect]
     Active Substance: PREDNISOLONE
     Indication: PRODUCT USED FOR UNKNOWN INDICATION
     Dosage: UNK (NK MG, ZULETZT AM 09.05.2017)
     Dates: end: 20170509
  9. CIPROFLOXACIN FRESENIUS            /00697201/ [Concomitant]
     Dosage: UNK (500 MG, AM 16.05.2017 ABGESETZT)

REACTIONS (3)
  - Productive cough [Unknown]
  - Pyrexia [Unknown]
  - Cough [Unknown]
